FAERS Safety Report 6014728-3 (Version None)
Quarter: 2008Q4

REPORT INFORMATION
  Report Type: 
  Country: None (occurrence: None)
  Receive Date: 20081219
  Receipt Date: 20081210
  Transmission Date: 20090506
  Serious: Yes (Other)
  Sender: FDA-Public Use
  Company Number: US-WYE-H07140908

PATIENT
  Sex: Male
  Weight: 70.82 kg

DRUGS (2)
  1. PRISTIQ [Suspect]
     Indication: DEPRESSION
     Route: 048
     Dates: start: 20081202
  2. LAMOTRIGINE [Interacting]
     Indication: CONVULSION
     Dosage: UNKNOWN

REACTIONS (7)
  - ARTHRALGIA [None]
  - CONDITION AGGRAVATED [None]
  - DEPRESSED MOOD [None]
  - DRUG INTERACTION [None]
  - EPILEPSY [None]
  - HEADACHE [None]
  - MYALGIA [None]
